FAERS Safety Report 7263036-1 (Version None)
Quarter: 2011Q1

REPORT INFORMATION
  Report Type: 
  Country: None (occurrence: None)
  Receive Date: 20110130
  Receipt Date: 20100920
  Transmission Date: 20110831
  Serious: No
  Sender: FDA-Public Use
  Company Number: US-ABBOTT-10P-163-0673061-00

PATIENT
  Sex: Female
  Weight: 59.02 kg

DRUGS (8)
  1. XANAX [Concomitant]
     Indication: ANXIETY
  2. VYTORIN [Concomitant]
     Indication: BLOOD CHOLESTEROL INCREASED
  3. HUMIRA [Suspect]
     Dates: start: 20100920
  4. PRILOSEC [Concomitant]
     Indication: GASTROOESOPHAGEAL REFLUX DISEASE
  5. LEVOTHYROXINE SODIUM [Concomitant]
     Indication: HYPOTHYROIDISM
  6. TEMAZEPAM [Concomitant]
     Indication: INSOMNIA
  7. MULTI-VITAMIN [Concomitant]
     Indication: PRODUCT USED FOR UNKNOWN INDICATION
  8. HUMIRA [Suspect]
     Indication: CROHN'S DISEASE
     Dates: start: 20100701, end: 20100910

REACTIONS (4)
  - DYSPNOEA [None]
  - HOT FLUSH [None]
  - BREATH SOUNDS ABNORMAL [None]
  - DEVICE MALFUNCTION [None]
